FAERS Safety Report 5382227-8 (Version None)
Quarter: 2007Q3

REPORT INFORMATION
  Report Type: 
  Country: None (occurrence: None)
  Receive Date: 20070709
  Receipt Date: 20070702
  Transmission Date: 20080115
  Serious: Yes (Hospitalization)
  Sender: FDA-Public Use
  Company Number: US-JNJFOC-20070700951

PATIENT
  Age: 44 Year
  Sex: Female
  Weight: 88.45 kg

DRUGS (2)
  1. ORTHO EVRA [Suspect]
     Indication: CONTRACEPTION
     Route: 062
  2. SOTALOL HYDROCHLORIDE [Concomitant]
     Indication: ARRHYTHMIA
     Route: 048

REACTIONS (1)
  - ARRHYTHMIA [None]
